FAERS Safety Report 13164922 (Version 4)
Quarter: 2017Q2

REPORT INFORMATION
  Report Type: Spontaneous
  Country: US (occurrence: US)
  Receive Date: 20170130
  Receipt Date: 20170508
  Transmission Date: 20170830
  Serious: No
  Sender: FDA-Public Use
  Company Number: US-ACTELION-A-US2017-149135

PATIENT
  Age: 76 Year
  Sex: Male

DRUGS (16)
  1. VALCHLOR [Suspect]
     Active Substance: MECHLORETHAMINE
     Indication: MYCOSIS FUNGOIDES
     Dosage: UNK, QD
     Route: 061
     Dates: start: 20170116
  2. COQ 10 [Concomitant]
     Active Substance: UBIDECARENONE
  3. OMEGA 3 [Concomitant]
     Active Substance: OMEGA-3 FATTY ACIDS
  4. LISINOPRIL. [Concomitant]
     Active Substance: LISINOPRIL
  5. OSTEO BI-FLEX [Concomitant]
     Active Substance: CHONDROITIN SULFATE A\GLUCOSAMINE
  6. ATENOLOL. [Concomitant]
     Active Substance: ATENOLOL
  7. SELENIUM [Concomitant]
     Active Substance: SELENIUM
  8. SPIRONOLACTONE. [Concomitant]
     Active Substance: SPIRONOLACTONE
  9. MULTIVITAMIN [Concomitant]
     Active Substance: VITAMINS
  10. ALDACTONE [Concomitant]
     Active Substance: SPIRONOLACTONE
  11. CHROMIUM PICOLINATE [Concomitant]
     Active Substance: CHROMIUM PICOLINATE
  12. ASPIRIN. [Concomitant]
     Active Substance: ASPIRIN
  13. HYTRIN [Concomitant]
     Active Substance: TERAZOSIN HYDROCHLORIDE
  14. TERAZOSIN [Concomitant]
     Active Substance: TERAZOSIN\TERAZOSIN HYDROCHLORIDE
  15. MVI [Concomitant]
     Active Substance: VITAMINS
  16. CITRACAL + D [Concomitant]
     Active Substance: CALCIUM CITRATE\VITAMIN D

REACTIONS (9)
  - Pruritus [Unknown]
  - Application site bruise [Unknown]
  - Application site dryness [Unknown]
  - Application site erythema [Unknown]
  - Application site exfoliation [Not Recovered/Not Resolved]
  - Application site swelling [Recovered/Resolved]
  - Wound secretion [Unknown]
  - Skin irritation [Unknown]
  - Superficial vein prominence [Unknown]
